FAERS Safety Report 9538453 (Version 1)
Quarter: 2013Q3

REPORT INFORMATION
  Report Type: Spontaneous
  Country: US (occurrence: None)
  Receive Date: 20130918
  Receipt Date: 20130918
  Transmission Date: 20140515
  Serious: Yes (Other)
  Sender: FDA-Public Use
  Company Number: None

PATIENT
  Age: 55 Year
  Sex: Male
  Weight: 81.65 kg

DRUGS (2)
  1. CHOLESTYRAMINE [Suspect]
     Indication: DIARRHOEA
     Dosage: POWDER ORANGE FLAVOR SINGLE DOSE PACK, AFTER DINNER
     Route: 048
     Dates: start: 20130101
  2. GLIMEPIRIDE 4 MG [Concomitant]

REACTIONS (2)
  - Dyspnoea [None]
  - Throat tightness [None]
